FAERS Safety Report 7986621 (Version 15)
Quarter: 2012Q4

REPORT INFORMATION
  Report Type: 
  Country: US (occurrence: US)
  Receive Date: 20110610
  Receipt Date: 20121008
  Transmission Date: 20130627
  Serious: Yes (Hospitalization, Disabling, Other)
  Sender: FDA-Public Use
  Company Number: US-009507513-1106USA00663

PATIENT

DRUGS (10)
  1. FOSAMAX [Suspect]
     Dosage: 70 mg, QW
     Route: 048
     Dates: start: 200401, end: 20051219
  2. FOSAMAX [Suspect]
     Dosage: UNK
     Route: 048
     Dates: start: 200309
  3. FOSAMAX PLUS D [Suspect]
     Indication: OSTEOPOROSIS
     Dosage: 70mg/2800
     Route: 048
     Dates: start: 20060218, end: 20091217
  4. FOSAMAX PLUS D [Suspect]
     Indication: OSTEOPENIA
     Dosage: 70mg/5600
     Route: 048
     Dates: start: 200812
  5. CALCIUM (UNSPECIFIED) [Concomitant]
     Dates: start: 2001
  6. VITAMIN D (UNSPECIFIED) [Concomitant]
     Dates: start: 2001
  7. CHONDROITIN SULFATE SODIUM (+) GLUCOSAMINE SULFATE [Concomitant]
     Dates: start: 2001
  8. SYNTHROID [Concomitant]
     Indication: HYPOTHYROIDISM
     Dates: start: 2001
  9. THYROID [Concomitant]
     Dates: start: 1971
  10. FOSAMAX PLUS D [Suspect]
     Indication: OSTEOPOROSIS
     Dosage: UNK
     Route: 048
     Dates: start: 200904

REACTIONS (35)
  - Femur fracture [Not Recovered/Not Resolved]
  - Low turnover osteopathy [Not Recovered/Not Resolved]
  - Osteoporosis [Not Recovered/Not Resolved]
  - Impaired healing [Unknown]
  - Fall [Unknown]
  - Hypertension [Not Recovered/Not Resolved]
  - Hypercholesterolaemia [Not Recovered/Not Resolved]
  - Tooth disorder [Unknown]
  - Muscular weakness [Unknown]
  - Spinal column stenosis [Unknown]
  - Intervertebral disc degeneration [Unknown]
  - Facet joint syndrome [Unknown]
  - Haemangioma of bone [Unknown]
  - Spinal disorder [Unknown]
  - Fracture nonunion [Recovered/Resolved]
  - Jaw disorder [Unknown]
  - Blood pressure increased [Unknown]
  - Anxiety [Unknown]
  - Hyperlipidaemia [Unknown]
  - Tooth abscess [Unknown]
  - Tooth fracture [Unknown]
  - Bursitis [Unknown]
  - Gait disturbance [Unknown]
  - Hypoaesthesia [Recovered/Resolved]
  - Arthritis [Unknown]
  - Nocturia [Unknown]
  - Device failure [Unknown]
  - Presyncope [Recovered/Resolved]
  - Ear pain [Unknown]
  - Dyspepsia [Unknown]
  - Vomiting [Recovering/Resolving]
  - Nausea [Recovering/Resolving]
  - Myalgia [Unknown]
  - Gastrooesophageal reflux disease [Unknown]
  - Joint swelling [Unknown]
